FAERS Safety Report 8143959-1 (Version None)
Quarter: 2012Q1

REPORT INFORMATION
  Report Type: 
  Country: None (occurrence: None)
  Receive Date: 20120217
  Receipt Date: 20120217
  Transmission Date: 20120608
  Serious: Yes (Other)
  Sender: FDA-Public Use
  Company Number: None

PATIENT
  Age: 34 Year
  Sex: Female
  Weight: 56.699 kg

DRUGS (1)
  1. NORGESTREL/ETHINYL ESTRADIOL [Suspect]
     Indication: PREVENTION OF PREMATURE OVULATION
     Dosage: 1 TAB
     Route: 048
     Dates: start: 20120102, end: 20120118

REACTIONS (3)
  - OVARIAN CYST [None]
  - BLOOD OESTROGEN INCREASED [None]
  - DRUG INEFFECTIVE [None]
